FAERS Safety Report 8996265 (Version 6)
Quarter: 2013Q2

REPORT INFORMATION
  Report Type: Spontaneous
  Country: US (occurrence: US)
  Receive Date: 20130103
  Receipt Date: 20130625
  Transmission Date: 20140414
  Serious: Yes (Hospitalization, Disabling, Other)
  Sender: FDA-Public Use
  Company Number: US-MERCK-1212USA010556

PATIENT
  Sex: Female
  Weight: 81 kg

DRUGS (4)
  1. FOSAMAX [Suspect]
     Indication: OSTEOPOROSIS
     Dosage: UNK
     Route: 048
     Dates: start: 1997
  2. FOSAMAX [Suspect]
     Indication: OSTEOPENIA
     Dosage: 10 MG, UNK
     Route: 048
  3. FOSAMAX [Suspect]
     Dosage: 70 MG, UNK
     Route: 048
  4. VITAMIN D (UNSPECIFIED) [Concomitant]
     Dosage: 1000 IU, UNK
     Dates: start: 1996

REACTIONS (51)
  - Femur fracture [Not Recovered/Not Resolved]
  - Open reduction of fracture [Unknown]
  - Knee arthroplasty [Unknown]
  - Ankle fracture [Unknown]
  - Osteoporosis [Not Recovered/Not Resolved]
  - Stress fracture [Not Recovered/Not Resolved]
  - Femur fracture [Not Recovered/Not Resolved]
  - Low turnover osteopathy [Not Recovered/Not Resolved]
  - Cholecystectomy [Unknown]
  - Rotator cuff repair [Unknown]
  - Joint dislocation [Unknown]
  - Pulmonary embolism [Unknown]
  - Spinal fusion surgery [Unknown]
  - Tooth extraction [Unknown]
  - Peptic ulcer [Unknown]
  - Deep vein thrombosis [Unknown]
  - Ulcer haemorrhage [Unknown]
  - Migraine [Unknown]
  - Hysterectomy [Unknown]
  - Tonsillectomy [Unknown]
  - Fall [Unknown]
  - Haemorrhagic anaemia [Unknown]
  - Hyperhidrosis [Unknown]
  - Sciatica [Unknown]
  - Road traffic accident [Unknown]
  - Rotator cuff syndrome [Unknown]
  - Haematoma [Unknown]
  - Prothrombin level increased [Unknown]
  - Haemoglobin decreased [Unknown]
  - Decreased appetite [Unknown]
  - Swelling [Unknown]
  - Varicose vein [Unknown]
  - Pain [Unknown]
  - Dyspnoea [Unknown]
  - Foot fracture [Unknown]
  - Fibula fracture [Unknown]
  - Ankle fracture [Unknown]
  - Foot fracture [Unknown]
  - Spinal fracture [Unknown]
  - Foot fracture [Unknown]
  - Fall [Unknown]
  - Foot fracture [Unknown]
  - Osteoarthritis [Unknown]
  - Exostosis [Unknown]
  - Back pain [Not Recovered/Not Resolved]
  - Arthralgia [Not Recovered/Not Resolved]
  - Gastrooesophageal reflux disease [Unknown]
  - Vomiting [Unknown]
  - Nausea [Unknown]
  - Dysphagia [Unknown]
  - Pain in extremity [Unknown]
